FAERS Safety Report 15296153 (Version 6)
Quarter: 2020Q4

REPORT INFORMATION
  Report Type: Spontaneous
  Country: CA (occurrence: CA)
  Receive Date: 20180820
  Receipt Date: 20201014
  Transmission Date: 20210113
  Serious: Yes (Death, Life-Threatening, Hospitalization, Disabling, Other)
  Sender: FDA-Public Use
  Company Number: CA-SA-2018SA000739

PATIENT

DRUGS (62)
  1. FUROSEMIDE. [Suspect]
     Active Substance: FUROSEMIDE
     Dosage: 40 MG, QD
     Route: 048
  2. AMIODARONE HYDROCHLORIDE. [Suspect]
     Active Substance: AMIODARONE HYDROCHLORIDE
     Indication: PRODUCT USED FOR UNKNOWN INDICATION
     Dosage: UNK
     Route: 065
     Dates: start: 2017, end: 2017
  3. ENOXAPARIN SODIUM. [Suspect]
     Active Substance: ENOXAPARIN SODIUM
     Dosage: 40 MG, QD
     Route: 058
  4. MORPHINE SULFATE. [Suspect]
     Active Substance: MORPHINE SULFATE
     Indication: PRODUCT USED FOR UNKNOWN INDICATION
     Dosage: 1-2 MG (ONCE IN 10 MINUTES, PRN)
     Route: 042
     Dates: start: 20170318
  5. CEFTRIAXONE SODIUM. [Suspect]
     Active Substance: CEFTRIAXONE SODIUM
     Dosage: 1 G, Q4H
     Route: 042
     Dates: start: 2017, end: 2017
  6. PACLITAXEL. [Suspect]
     Active Substance: PACLITAXEL
     Indication: BREAST CANCER FEMALE
     Dosage: 297 MG,QOW, 297 MG, Q2WEEKS (ONCE EVERY 14 DAYS) (1 EVERY 2 WEEK(S))
     Route: 042
     Dates: start: 2017, end: 2017
  7. DIGOXIN. [Suspect]
     Active Substance: DIGOXIN
     Dosage: 10 MG
     Route: 042
  8. DILTIAZEM HYDROCHLORIDE. [Suspect]
     Active Substance: DILTIAZEM HYDROCHLORIDE
     Dosage: 180 MG
     Route: 048
  9. CYCLOPHOSPHAMIDE. [Suspect]
     Active Substance: CYCLOPHOSPHAMIDE
     Dosage: 1060 MG, QD (1X/DAY)
     Route: 042
  10. METOCLOPRAMIDE. [Concomitant]
     Active Substance: METOCLOPRAMIDE
     Indication: PRODUCT USED FOR UNKNOWN INDICATION
     Dosage: 10 MG, Q6H
     Route: 065
     Dates: start: 20161215
  11. MORPHINE SULFATE. [Suspect]
     Active Substance: MORPHINE SULFATE
     Dosage: UNK UNK, UNK
     Route: 042
  12. METHYLPREDNISOLONE. [Suspect]
     Active Substance: METHYLPREDNISOLONE
     Indication: PRODUCT USED FOR UNKNOWN INDICATION
     Dosage: 125 MG,Q6H,125 MG, 4X/DAY (EVERY 6 HOURS)
     Route: 042
     Dates: start: 2017, end: 2017
  13. DIGOXIN. [Suspect]
     Active Substance: DIGOXIN
     Dosage: 0.25 MG, Q4H
     Route: 042
     Dates: start: 2017, end: 2017
  14. DOXORUBICIN [Suspect]
     Active Substance: DOXORUBICIN
     Indication: BREAST CANCER FEMALE
     Dosage: 106 MG,QOW, 106 MG, Q2WEEKS (ONCE EVERY 14 DAYS) (1 EVERY 2 WEEK(S))
     Route: 042
     Dates: start: 2017, end: 2017
  15. CYCLOPHOSPHAMIDE. [Suspect]
     Active Substance: CYCLOPHOSPHAMIDE
     Indication: BREAST CANCER FEMALE
     Dosage: 1060 MG, QCY
     Route: 042
  16. HYDRALAZINE [Suspect]
     Active Substance: HYDRALAZINE HYDROCHLORIDE
     Dosage: 10 MG, Q4H
     Route: 042
  17. DIMENHYDRINATE. [Suspect]
     Active Substance: DIMENHYDRINATE
     Dosage: 50 MG, Q4H
     Route: 042
     Dates: start: 2017, end: 2017
  18. FILGRASTIM [Concomitant]
     Active Substance: FILGRASTIM
     Indication: SUPPORTIVE CARE
     Dosage: 300 UG, QD
     Route: 058
  19. GABAPENTIN. [Concomitant]
     Active Substance: GABAPENTIN
     Indication: PRODUCT USED FOR UNKNOWN INDICATION
     Dosage: 100 MG, TID
     Route: 065
  20. HYDROMORPHONE HYDROCHLORIDE. [Suspect]
     Active Substance: HYDROMORPHONE HYDROCHLORIDE
     Indication: PRODUCT USED FOR UNKNOWN INDICATION
     Dosage: 0.25-0.5 MG (ONCE IN 4 TO 6 HRS PRN)
     Route: 042
     Dates: start: 2017, end: 2017
  21. CYCLOPHOSPHAMIDE. [Suspect]
     Active Substance: CYCLOPHOSPHAMIDE
     Indication: BREAST CANCER
     Dosage: 1060 MG,QOW
     Route: 042
  22. CYCLOPHOSPHAMIDE. [Suspect]
     Active Substance: CYCLOPHOSPHAMIDE
     Dosage: 1060 MG, QCY
     Route: 042
  23. HYDRALAZINE [Suspect]
     Active Substance: HYDRALAZINE HYDROCHLORIDE
     Indication: PRODUCT USED FOR UNKNOWN INDICATION
     Dosage: 10 MG, Q6H
     Route: 042
     Dates: start: 20170318
  24. ONDANSETRON [Concomitant]
     Active Substance: ONDANSETRON
     Indication: PRODUCT USED FOR UNKNOWN INDICATION
     Dosage: 8 G, BID
     Route: 048
  25. FUROSEMIDE. [Suspect]
     Active Substance: FUROSEMIDE
     Indication: PRODUCT USED FOR UNKNOWN INDICATION
     Dosage: 40 MG,QD
     Route: 048
     Dates: start: 2017, end: 2017
  26. ENOXAPARIN SODIUM. [Suspect]
     Active Substance: ENOXAPARIN SODIUM
     Dosage: 50 MG, Q4H
     Route: 058
     Dates: start: 2017, end: 2017
  27. CEFTRIAXONE SODIUM. [Suspect]
     Active Substance: CEFTRIAXONE SODIUM
     Indication: PRODUCT USED FOR UNKNOWN INDICATION
     Dosage: 1 G, QD
     Route: 042
     Dates: start: 2017, end: 2017
  28. HYDROMORPHONE [Suspect]
     Active Substance: HYDROMORPHONE
     Indication: PRODUCT USED FOR UNKNOWN INDICATION
     Route: 065
  29. DOXORUBICIN [Suspect]
     Active Substance: DOXORUBICIN
     Dosage: 106 MG
     Route: 042
  30. METOPROLOL TARTRATE. [Suspect]
     Active Substance: METOPROLOL TARTRATE
     Dosage: 5 MG,Q6H (4X/DAY (EVERY 6 HOURS))
     Route: 042
     Dates: start: 20170318
  31. CYCLOPHOSPHAMIDE. [Suspect]
     Active Substance: CYCLOPHOSPHAMIDE
     Dosage: 125 UNK (4X/DAY)
     Route: 042
  32. CYCLOPHOSPHAMIDE. [Suspect]
     Active Substance: CYCLOPHOSPHAMIDE
     Dosage: 1060 MG, QCY
     Route: 042
  33. HYDRALAZINE [Suspect]
     Active Substance: HYDRALAZINE HYDROCHLORIDE
     Dosage: 10 MG, Q6H (4X/DAY (1 EVERY 6 HOUR(S))
     Route: 042
  34. FILGRASTIM [Concomitant]
     Active Substance: FILGRASTIM
     Indication: PRODUCT USED FOR UNKNOWN INDICATION
     Dosage: UNK
     Route: 058
  35. ONDANSETRON [Concomitant]
     Active Substance: ONDANSETRON
     Dosage: UNK
     Route: 048
  36. DEXAMETHASONE. [Concomitant]
     Active Substance: DEXAMETHASONE
     Indication: SUPPORTIVE CARE
     Dosage: 20 MG, QD
     Route: 065
  37. ACETAMINOPHEN;CAFFEINE;DIHYDROCODEINE [Concomitant]
     Active Substance: ACETAMINOPHEN\CAFFEINE\DIHYDROCODEINE BITARTRATE
     Dosage: UNK UNK, UNK
     Route: 065
  38. AMIODARONE HYDROCHLORIDE. [Suspect]
     Active Substance: AMIODARONE HYDROCHLORIDE
     Dosage: UNK UNK, UNK
     Route: 065
  39. PANTOPRAZOLE SODIUM. [Suspect]
     Active Substance: PANTOPRAZOLE SODIUM
     Indication: PRODUCT USED FOR UNKNOWN INDICATION
     Dosage: 8 MG,QH,8 MG, ONCE EVERY HOUR
     Route: 042
     Dates: start: 20170318
  40. CEFTRIAXONE SODIUM. [Suspect]
     Active Substance: CEFTRIAXONE SODIUM
     Dosage: 1 G, QD, 1 G, 1X/DAY
     Route: 042
  41. AZITHROMYCIN ANHYDROUS. [Suspect]
     Active Substance: AZITHROMYCIN ANHYDROUS
     Dosage: 500 MG, QD, 500 MG, 1X/DAY
     Route: 042
  42. DIGOXIN. [Suspect]
     Active Substance: DIGOXIN
     Dosage: 0.25 MG
     Route: 042
  43. CYCLOPHOSPHAMIDE. [Suspect]
     Active Substance: CYCLOPHOSPHAMIDE
     Dosage: 1060 MG,QOW
     Route: 042
     Dates: start: 2017, end: 2017
  44. ENOXAPARIN SODIUM. [Suspect]
     Active Substance: ENOXAPARIN SODIUM
     Indication: PRODUCT USED FOR UNKNOWN INDICATION
     Dosage: 40 MG, QD
     Route: 058
     Dates: start: 2017, end: 2017
  45. TRASTUZUMAB. [Suspect]
     Active Substance: TRASTUZUMAB
     Indication: BREAST CANCER FEMALE
     Dosage: UNK UNK,UNK
     Route: 065
  46. METOPROLOL TARTRATE. [Suspect]
     Active Substance: METOPROLOL TARTRATE
     Indication: PRODUCT USED FOR UNKNOWN INDICATION
     Dosage: 2.5 MG, Q6H (4X/DAY (EVERY 6 HOURS) )
     Route: 042
     Dates: start: 20170318
  47. METOCLOPRAMIDE. [Concomitant]
     Active Substance: METOCLOPRAMIDE
     Dosage: 10 MG
     Route: 065
  48. PANTOPRAZOLE SODIUM. [Suspect]
     Active Substance: PANTOPRAZOLE SODIUM
     Dosage: 8 MG
     Route: 042
  49. METHYLPREDNISOLONE. [Suspect]
     Active Substance: METHYLPREDNISOLONE
     Dosage: 125 MG, QID (125 MG, 4X/DAY)
     Route: 042
  50. HYDROMORPHONE HYDROCHLORIDE. [Suspect]
     Active Substance: HYDROMORPHONE HYDROCHLORIDE
     Dosage: UNK UNK, UNK
     Route: 042
  51. PACLITAXEL. [Suspect]
     Active Substance: PACLITAXEL
     Dosage: 297 MG
     Route: 042
  52. DILTIAZEM HYDROCHLORIDE. [Suspect]
     Active Substance: DILTIAZEM HYDROCHLORIDE
     Indication: PRODUCT USED FOR UNKNOWN INDICATION
     Dosage: 180 MG
     Route: 048
     Dates: start: 2017, end: 2017
  53. MORPHINE HYDROCHLORIDE [Suspect]
     Active Substance: MORPHINE HYDROCHLORIDE
     Indication: PRODUCT USED FOR UNKNOWN INDICATION
     Dosage: UNK UNK, PRN ((1-2 MG) ONCE IN 10 MINS)
     Route: 042
     Dates: start: 2017
  54. DOXORUBICIN HYDROCHLORIDE. [Suspect]
     Active Substance: DOXORUBICIN HYDROCHLORIDE
     Indication: BREAST CANCER
     Dosage: (106 MG,1 IN 14 D)
     Route: 042
  55. DIMENHYDRINATE. [Suspect]
     Active Substance: DIMENHYDRINATE
     Indication: PRODUCT USED FOR UNKNOWN INDICATION
     Dosage: 50 MG, Q6H THERAPY DURATION: SIX DAYS
     Route: 042
     Dates: start: 2017
  56. GABAPENTIN. [Concomitant]
     Active Substance: GABAPENTIN
     Dosage: UNK
     Route: 065
  57. AZITHROMYCIN ANHYDROUS. [Suspect]
     Active Substance: AZITHROMYCIN ANHYDROUS
     Indication: PRODUCT USED FOR UNKNOWN INDICATION
     Dosage: 500 MG,QD
     Route: 042
     Dates: start: 2017, end: 2017
  58. DIGOXIN. [Suspect]
     Active Substance: DIGOXIN
     Indication: PRODUCT USED FOR UNKNOWN INDICATION
     Dosage: 10 MG,Q4H, 10 MG, (1 EVERY 4 HOUR (S))
     Route: 042
     Dates: start: 2017, end: 2017
  59. CYCLOPHOSPHAMIDE. [Suspect]
     Active Substance: CYCLOPHOSPHAMIDE
     Dosage: 1060 MG,QOW
     Route: 042
  60. MORPHINE HYDROCHLORIDE [Suspect]
     Active Substance: MORPHINE HYDROCHLORIDE
     Dosage: UNK
     Route: 065
  61. DEXAMETHASONE. [Concomitant]
     Active Substance: DEXAMETHASONE
     Indication: PRODUCT USED FOR UNKNOWN INDICATION
     Dosage: UNK UNK, UNK
     Route: 048
  62. APREPITANT. [Concomitant]
     Active Substance: APREPITANT
     Indication: SUPPORTIVE CARE
     Dosage: 125 MG
     Route: 048

REACTIONS (3)
  - Alveolitis [Fatal]
  - Atrial fibrillation [Fatal]
  - Hypoxia [Fatal]

NARRATIVE: CASE EVENT DATE: 2017
